FAERS Safety Report 25620491 (Version 1)
Quarter: 2025Q3

REPORT INFORMATION
  Report Type: Spontaneous
  Country: GB (occurrence: GB)
  Receive Date: 20250730
  Receipt Date: 20250730
  Transmission Date: 20251020
  Serious: Yes (Hospitalization, Other)
  Sender: SANDOZ
  Company Number: GB-ASTRAZENECA-202507GBR019491GB

PATIENT
  Age: 45 Year
  Sex: Female
  Weight: 81 kg

DRUGS (4)
  1. FULVESTRANT [Suspect]
     Active Substance: FULVESTRANT
     Indication: Breast cancer female
     Dosage: 500 MILLIGRAM, Q4W
     Route: 030
     Dates: start: 20250506
  2. PALBOCICLIB [Suspect]
     Active Substance: PALBOCICLIB
     Indication: Breast cancer female
     Dosage: 125 MILLIGRAM, QD
     Route: 048
     Dates: start: 20250506, end: 20250617
  3. PALBOCICLIB [Suspect]
     Active Substance: PALBOCICLIB
     Dosage: 125 MILLIGRAM, QD
     Route: 065
     Dates: start: 20250630
  4. KETOPROFEN [Concomitant]
     Active Substance: KETOPROFEN
     Indication: Headache
     Route: 065
     Dates: start: 202104

REACTIONS (9)
  - Presyncope [Recovered/Resolved]
  - Loss of consciousness [Unknown]
  - Malaise [Unknown]
  - Hypertonia [Unknown]
  - Muscle contractions involuntary [Unknown]
  - Bradykinesia [Unknown]
  - Anxiety [Unknown]
  - Asthenia [Unknown]
  - Nausea [Unknown]

NARRATIVE: CASE EVENT DATE: 20250618
